FAERS Safety Report 25848550 (Version 1)
Quarter: 2025Q3

REPORT INFORMATION
  Report Type: Spontaneous
  Country: US (occurrence: US)
  Receive Date: 20250925
  Receipt Date: 20250925
  Transmission Date: 20251021
  Serious: Yes (Other)
  Sender: NOVARTIS
  Company Number: US-002147023-NVSC2025US144037

PATIENT
  Sex: Female

DRUGS (4)
  1. KESIMPTA [Suspect]
     Active Substance: OFATUMUMAB
     Indication: Product used for unknown indication
     Route: 065
     Dates: start: 20250824
  2. ATIVAN [Concomitant]
     Active Substance: LORAZEPAM
     Indication: Product used for unknown indication
     Route: 065
  3. ADDERALL [Concomitant]
     Active Substance: AMPHETAMINE ASPARTATE\AMPHETAMINE SULFATE\DEXTROAMPHETAMINE SACCHARATE\DEXTROAMPHETAMINE SULFATE
     Indication: Product used for unknown indication
     Route: 065
  4. B12 [Concomitant]
     Indication: Product used for unknown indication
     Route: 065

REACTIONS (13)
  - Autism spectrum disorder [Unknown]
  - Chest pain [Unknown]
  - Nausea [Unknown]
  - Eye infection [Unknown]
  - Asthenia [Unknown]
  - Swelling face [Unknown]
  - Chills [Unknown]
  - Burning sensation [Unknown]
  - Nasal congestion [Unknown]
  - Confusional state [Unknown]
  - Nasopharyngitis [Unknown]
  - Feeling hot [Unknown]
  - Pain [Unknown]
